FAERS Safety Report 9157464 (Version 2)
Quarter: 2013Q2

REPORT INFORMATION
  Report Type: Spontaneous
  Country: US (occurrence: US)
  Receive Date: 20130312
  Receipt Date: 20130402
  Transmission Date: 20140414
  Serious: Yes (Other)
  Sender: FDA-Public Use
  Company Number: US-PFIZER INC-2013082100

PATIENT
  Age: 56 Year
  Sex: Female
  Weight: 125 kg

DRUGS (11)
  1. PRISTIQ [Suspect]
     Indication: DEPRESSION
     Dosage: 50 MG, 1X/DAY
     Route: 048
     Dates: start: 2010
  2. PRISTIQ [Suspect]
     Indication: DYSTHYMIC DISORDER
  3. VALIUM [Concomitant]
     Dosage: 10 MG, 3X/DAY
     Route: 048
  4. MORPHINE [Concomitant]
     Dosage: UNK
  5. BACLOFEN [Concomitant]
     Dosage: 20 MG, 3X/DAY
     Route: 048
     Dates: start: 20111118
  6. BACLOFEN [Concomitant]
     Dosage: 10 MG, 3X/DAY
  7. SYNTHROID [Concomitant]
     Dosage: 200 UG, 2X/DAY
  8. PROMETHAZINE [Concomitant]
     Dosage: 25 MG/ML
  9. CLARITIN [Concomitant]
     Dosage: 1 Q 4 HRS
  10. LODINE [Concomitant]
     Dosage: 600 MG, 2X/DAY
  11. ALBUTEROL SULFATE [Concomitant]
     Dosage: 2 PUFFS Q 4 HRS PRN

REACTIONS (4)
  - Lower limb fracture [Unknown]
  - Obesity [Unknown]
  - Fall [Unknown]
  - Pain in extremity [Unknown]
